FAERS Safety Report 8956018 (Version 1)
Quarter: 2012Q4

REPORT INFORMATION
  Report Type: 
  Country: US (occurrence: US)
  Receive Date: 20121210
  Receipt Date: 20121210
  Transmission Date: 20130627
  Serious: No
  Sender: FDA-Public Use
  Company Number: US-TEVA-370494USA

PATIENT
  Age: 50 Year
  Sex: Female
  Weight: 68.1 kg

DRUGS (16)
  1. NUVIGIL [Suspect]
     Indication: FATIGUE
     Dosage: Q AM
     Route: 048
     Dates: start: 20121113
  2. REBIF [Concomitant]
     Indication: MULTIPLE SCLEROSIS
  3. CYMBALTA [Concomitant]
     Indication: MULTIPLE SCLEROSIS
  4. DYAZIDE [Concomitant]
     Indication: FLUID RETENTION
     Dosage: 37.5/25mg
     Route: 048
  5. REQUIP [Concomitant]
     Indication: RESTLESS LEGS SYNDROME
  6. MULTIVITAMIN [Concomitant]
     Indication: SUPPLEMENTATION THERAPY
  7. VITAMIN B12 [Concomitant]
     Indication: SUPPLEMENTATION THERAPY
  8. VITAMIN C [Concomitant]
     Indication: SUPPLEMENTATION THERAPY
  9. VITAMIN E [Concomitant]
     Indication: SUPPLEMENTATION THERAPY
  10. VITAMIN D [Concomitant]
     Indication: SUPPLEMENTATION THERAPY
  11. CALCIUM [Concomitant]
     Indication: SUPPLEMENTATION THERAPY
  12. MAGNESIUM [Concomitant]
     Indication: SUPPLEMENTATION THERAPY
  13. ZINC [Concomitant]
     Indication: SUPPLEMENTATION THERAPY
  14. FISH OIL [Concomitant]
     Indication: SUPPLEMENTATION THERAPY
  15. CINNAMON [Concomitant]
     Indication: SUPPLEMENTATION THERAPY
  16. PROBIOTIC [Concomitant]
     Indication: SUPPLEMENTATION THERAPY

REACTIONS (4)
  - Insomnia [Unknown]
  - Headache [Not Recovered/Not Resolved]
  - Nervousness [Unknown]
  - Off label use [Unknown]
